FAERS Safety Report 7268709-2 (Version None)
Quarter: 2011Q1

REPORT INFORMATION
  Report Type: 
  Country: None (occurrence: None)
  Receive Date: 20110201
  Receipt Date: 20110124
  Transmission Date: 20110831
  Serious: Yes (Hospitalization, Other)
  Sender: FDA-Public Use
  Company Number: US-US-EMD SERONO, INC.-236701J08USA

PATIENT
  Sex: Female
  Weight: 73 kg

DRUGS (5)
  1. EFFEXOR [Concomitant]
     Indication: DEPRESSION
  2. THYROID TAB [Concomitant]
     Indication: THYROID DISORDER
  3. TYLENOL-500 [Concomitant]
     Indication: PREMEDICATION
  4. PROVIGIL [Concomitant]
     Indication: FATIGUE
  5. REBIF [Suspect]
     Indication: MULTIPLE SCLEROSIS
     Route: 058
     Dates: start: 20030402

REACTIONS (6)
  - MENISCUS LESION [None]
  - PARAESTHESIA [None]
  - JOINT HYPEREXTENSION [None]
  - JOINT SPRAIN [None]
  - NEUROPATHY PERIPHERAL [None]
  - HYPOAESTHESIA [None]
